FAERS Safety Report 6867588-2 (Version None)
Quarter: 2010Q3

REPORT INFORMATION
  Report Type: 
  Country: None (occurrence: None)
  Receive Date: 20100722
  Receipt Date: 20090616
  Transmission Date: 20110219
  Serious: No
  Sender: FDA-Public Use
  Company Number: US-BAUSCH-2009BL003001

PATIENT
  Age: 37 Year
  Sex: Female
  Weight: 86 kg

DRUGS (4)
  1. OPCON-A [Suspect]
     Indication: EYE PRURITUS
     Route: 047
     Dates: start: 20090615, end: 20090615
  2. OPCON-A [Suspect]
     Route: 047
     Dates: start: 19990101, end: 20090614
  3. LORATADINE [Concomitant]
     Indication: SEASONAL ALLERGY
     Route: 048
     Dates: start: 19960101
  4. PROZAC [Concomitant]
     Indication: ANXIETY
     Route: 048
     Dates: start: 20000101

REACTIONS (1)
  - HEADACHE [None]
